FAERS Safety Report 11670402 (Version 5)
Quarter: 2015Q4

REPORT INFORMATION
  Report Type: Spontaneous
  Country: PL (occurrence: PL)
  Receive Date: 20151028
  Receipt Date: 20151228
  Transmission Date: 20160304
  Serious: Yes (Death, Hospitalization, Other)
  Sender: FDA-Public Use
  Company Number: PL-ROCHE-1650382

PATIENT
  Age: 57 Year
  Sex: Male
  Weight: 60 kg

DRUGS (5)
  1. RITUXIMAB [Suspect]
     Active Substance: RITUXIMAB
     Indication: DIFFUSE LARGE B-CELL LYMPHOMA
     Route: 042
     Dates: start: 201505, end: 201509
  2. VINCRISTINE [Suspect]
     Active Substance: VINCRISTINE
     Indication: DIFFUSE LARGE B-CELL LYMPHOMA
     Route: 042
     Dates: start: 201505, end: 201509
  3. DOXORUBICIN [Concomitant]
     Active Substance: DOXORUBICIN
     Indication: DIFFUSE LARGE B-CELL LYMPHOMA
     Route: 042
     Dates: start: 201505, end: 201509
  4. PREDNISONE. [Concomitant]
     Active Substance: PREDNISONE
     Indication: DIFFUSE LARGE B-CELL LYMPHOMA
     Dosage: 5 DAYS/3 WEEKS
     Route: 048
     Dates: start: 201505, end: 201509
  5. CYCLOPHOSPHAMIDE. [Concomitant]
     Active Substance: CYCLOPHOSPHAMIDE
     Indication: DIFFUSE LARGE B-CELL LYMPHOMA
     Route: 042
     Dates: start: 201505, end: 201509

REACTIONS (12)
  - Peripheral nerve palsy [Fatal]
  - Nervous system disorder [Unknown]
  - Toxicity to various agents [Unknown]
  - Ill-defined disorder [Unknown]
  - Cardiac arrest [Fatal]
  - Sepsis [Unknown]
  - Dysphagia [Unknown]
  - Peripheral sensorimotor neuropathy [Fatal]
  - Pneumonia [Unknown]
  - Altered state of consciousness [Unknown]
  - Respiratory failure [Fatal]
  - Septic shock [Unknown]

NARRATIVE: CASE EVENT DATE: 20151015
